FAERS Safety Report 14323873 (Version 1)
Quarter: 2017Q4

REPORT INFORMATION
  Report Type: Spontaneous
  Country: LB (occurrence: LB)
  Receive Date: 20171226
  Receipt Date: 20171226
  Transmission Date: 20180321
  Serious: Yes (Other)
  Sender: FDA-Public Use
  Company Number: LB-ROCHE-2044582

PATIENT
  Sex: Male

DRUGS (1)
  1. RITUXAN [Suspect]
     Active Substance: RITUXIMAB
     Indication: ANKYLOSING SPONDYLITIS
     Route: 065

REACTIONS (2)
  - Respiratory failure [Unknown]
  - Off label use [Unknown]
